FAERS Safety Report 12535329 (Version 1)
Quarter: 2016Q3

REPORT INFORMATION
  Report Type: Spontaneous
  Country: US (occurrence: US)
  Receive Date: 20160707
  Receipt Date: 20160707
  Transmission Date: 20161109
  Serious: No
  Sender: FDA-Public Use
  Company Number: US-TEVA-670984USA

PATIENT
  Sex: Female

DRUGS (6)
  1. ST. JOSEPH [Concomitant]
  2. BACLOFEN. [Concomitant]
     Active Substance: BACLOFEN
  3. ASPIRIN. [Concomitant]
     Active Substance: ASPIRIN
  4. CENTRUM [Concomitant]
     Active Substance: VITAMINS
  5. COPAXONE [Suspect]
     Active Substance: GLATIRAMER ACETATE
     Indication: MULTIPLE SCLEROSIS
     Dosage: 40MG/ML
     Route: 058
     Dates: start: 20130123
  6. FLUOXETINE HYDROCHLOROT [Concomitant]

REACTIONS (2)
  - Temperature regulation disorder [Unknown]
  - Chills [Unknown]
